FAERS Safety Report 5125205-6 (Version None)
Quarter: 2006Q4

REPORT INFORMATION
  Report Type: 
  Country: None (occurrence: None)
  Receive Date: 20061006
  Receipt Date: 20061004
  Transmission Date: 20070319
  Serious: Yes (Other)
  Sender: FDA-Public Use
  Company Number: A0622507A

PATIENT
  Sex: 0

DRUGS (1)
  1. ADVAIR HFA [Suspect]
     Indication: DRUG USE FOR UNKNOWN INDICATION
     Dosage: INHALED
     Route: 055

REACTIONS (3)
  - BLINDNESS [None]
  - CATARACT [None]
  - ILL-DEFINED DISORDER [None]
